FAERS Safety Report 6436171 (Version 28)
Quarter: 2014Q1

REPORT INFORMATION
  Report Type: Spontaneous
  Country: US (occurrence: US)
  Receive Date: 20071005
  Receipt Date: 20140101
  Transmission Date: 20141002
  Serious: Yes (Death, Life-Threatening, Hospitalization, Other)
  Sender: FDA-Public Use
  Company Number: PHEH2007US13089

PATIENT
  Age: 67 Year
  Sex: Female
  Weight: 79.82 kg

DRUGS (17)
  1. AREDIA [Suspect]
     Indication: PLASMA CELL MYELOMA
     Dosage: QMO
     Route: 041
     Dates: start: 1997
  2. ZOMETA [Suspect]
     Route: 042
  3. ALKERAN [Concomitant]
     Dosage: UNK UKN, UNK
     Dates: end: 1998
  4. PREDNISONE [Concomitant]
     Dosage: UNK UKN, UNK
     Dates: end: 1998
  5. PREDNISONE [Concomitant]
     Dosage: UNK UKN, UNK
     Dates: start: 2006
  6. CHEMOTHERAPEUTICS NOS [Concomitant]
  7. COUMADIN ^BOOTS^ [Concomitant]
  8. TYLENOL EXTRA-STRENGTH [Concomitant]
  9. MULTIVITAMINS [Concomitant]
  10. CYMBALTA [Concomitant]
  11. SYNTHROID [Concomitant]
  12. ALTABAX [Concomitant]
  13. LISINOPRIL [Concomitant]
  14. CLEOCIN [Concomitant]
  15. DEXAMETHASONE [Concomitant]
  16. VELCADE [Concomitant]
  17. REVLIMID [Concomitant]

REACTIONS (142)
  - Death [Fatal]
  - Respiratory failure [Unknown]
  - Renal failure [Unknown]
  - Septic shock [Unknown]
  - Osteonecrosis of jaw [Unknown]
  - Pain in jaw [Recovering/Resolving]
  - Infection [Unknown]
  - Deformity [Unknown]
  - Bone erosion [Unknown]
  - Actinomycosis [Unknown]
  - Pancytopenia [Unknown]
  - Basal cell carcinoma [Unknown]
  - Gastrointestinal haemorrhage [Unknown]
  - Bone disorder [Unknown]
  - Tendonitis [Unknown]
  - Exostosis [Unknown]
  - Bursitis [Unknown]
  - Depressed mood [Unknown]
  - Malignant neoplasm progression [Unknown]
  - Plantar fasciitis [Unknown]
  - Osteoarthritis [Unknown]
  - Seborrhoeic keratosis [Unknown]
  - Essential hypertension [Unknown]
  - Urinary tract infection [Unknown]
  - Cystitis noninfective [Unknown]
  - Bronchitis [Unknown]
  - Pneumonia [Unknown]
  - Renal cyst [Unknown]
  - Hypothyroidism [Unknown]
  - Constipation [Unknown]
  - Large intestine polyp [Unknown]
  - Musculoskeletal discomfort [Unknown]
  - Fungal infection [Unknown]
  - Herpes zoster [Unknown]
  - Fall [Unknown]
  - Tongue disorder [Unknown]
  - Bone lesion [Unknown]
  - Meningioma [Unknown]
  - Polyp [Unknown]
  - Squamous cell carcinoma [Recovered/Resolved]
  - Skin ulcer [Recovering/Resolving]
  - Staphylococcal infection [Unknown]
  - Asthenia [Recovering/Resolving]
  - Gastrointestinal toxicity [Unknown]
  - Colitis [Unknown]
  - Malnutrition [Recovered/Resolved]
  - Ileus paralytic [Unknown]
  - Peritonitis [Unknown]
  - Supraventricular tachycardia [Unknown]
  - Pleural effusion [Recovered/Resolved]
  - Neuropathy peripheral [Unknown]
  - Panic attack [Not Recovered/Not Resolved]
  - Diarrhoea [Recovered/Resolved]
  - Rosacea [Unknown]
  - Blepharitis [Unknown]
  - Cataract [Unknown]
  - Vision blurred [Unknown]
  - Skin bacterial infection [Unknown]
  - Pain in extremity [Unknown]
  - Cardiomegaly [Unknown]
  - Spinal osteoarthritis [Unknown]
  - Atrophy [Unknown]
  - Cellulitis [Unknown]
  - Mental status changes [Unknown]
  - Arthralgia [Unknown]
  - Osteopenia [Unknown]
  - Atelectasis [Unknown]
  - Acquired diaphragmatic eventration [Unknown]
  - Spinal compression fracture [Unknown]
  - Osteoporosis [Unknown]
  - Anxiety [Unknown]
  - Gastrooesophageal reflux disease [Unknown]
  - Weight decreased [Unknown]
  - Dyspnoea [Unknown]
  - Ataxia [Unknown]
  - Arrhythmia [Unknown]
  - Gait disturbance [Unknown]
  - Kyphosis [Unknown]
  - Urinary incontinence [Unknown]
  - Malignant hypertension [Unknown]
  - Measles [Unknown]
  - Back pain [Recovering/Resolving]
  - Bone swelling [Unknown]
  - Actinic keratosis [Unknown]
  - Insomnia [Recovering/Resolving]
  - Neutropenia [Unknown]
  - Thrombocytopenia [Recovering/Resolving]
  - Haemorrhage [Unknown]
  - Ecchymosis [Unknown]
  - Nasal septum deviation [Unknown]
  - Intervertebral disc space narrowing [Unknown]
  - Intervertebral disc degeneration [Unknown]
  - Aortic arteriosclerosis [Unknown]
  - Aortic calcification [Unknown]
  - Muscle spasms [Unknown]
  - Osteosclerosis [Unknown]
  - Vascular calcification [Unknown]
  - Mitral valve calcification [Unknown]
  - Scoliosis [Unknown]
  - Actinomycotic skin infection [Unknown]
  - Dysphagia [Unknown]
  - Oedema peripheral [Unknown]
  - Discomfort [Unknown]
  - Skin mass [Unknown]
  - Skin induration [Unknown]
  - Lung consolidation [Unknown]
  - Dental caries [Unknown]
  - Dental plaque [Unknown]
  - Vertebral foraminal stenosis [Unknown]
  - Laryngitis [Unknown]
  - Hiatus hernia [Unknown]
  - Osteonecrosis [Unknown]
  - Hypogammaglobulinaemia [Unknown]
  - Hypoalbuminaemia [Unknown]
  - Fatigue [Unknown]
  - Vitamin D deficiency [Unknown]
  - Chest pain [Unknown]
  - Dizziness [Unknown]
  - Synovial cyst [Unknown]
  - Lung infiltration [Unknown]
  - Metastases to bone [Unknown]
  - Tooth fracture [Unknown]
  - Bone fragmentation [Unknown]
  - Cystitis [Unknown]
  - Peroneal nerve palsy [Unknown]
  - Facial pain [Unknown]
  - Jaw fracture [Unknown]
  - Rhinitis allergic [Unknown]
  - Ear pain [Unknown]
  - Oral candidiasis [Unknown]
  - Agranulocytosis [Unknown]
  - Arteriosclerosis coronary artery [Unknown]
  - Pulmonary embolism [Unknown]
  - Asthma [Unknown]
  - Breast calcifications [Unknown]
  - Febrile neutropenia [Unknown]
  - Dehydration [Unknown]
  - Rectal haemorrhage [Unknown]
  - Hepatic cyst [Unknown]
  - Ascites [Unknown]
  - Mucosal inflammation [Unknown]
  - Hypoxia [Unknown]
